FAERS Safety Report 16371703 (Version 1)
Quarter: 2019Q2

REPORT INFORMATION
  Report Type: Spontaneous
  Country: JP (occurrence: JP)
  Receive Date: 20190530
  Receipt Date: 20190530
  Transmission Date: 20190711
  Serious: Yes (Other)
  Sender: FDA-Public Use
  Company Number: JP-BAYER-2019-097853

PATIENT

DRUGS (1)
  1. STIVARGA [Suspect]
     Active Substance: REGORAFENIB
     Indication: OSTEOSARCOMA
     Route: 048

REACTIONS (5)
  - Product use in unapproved indication [None]
  - Osteosarcoma [Unknown]
  - Cardiac failure [Unknown]
  - Off label use [None]
  - Product use issue [None]
